FAERS Safety Report 4482617-1 (Version None)
Quarter: 2004Q3

REPORT INFORMATION
  Report Type: 
  Country: None (occurrence: None)
  Receive Date: 20040921
  Receipt Date: 20040615
  Transmission Date: 20050211
  Serious: Yes (Hospitalization, Other)
  Sender: FDA-Public Use
  Company Number: 163-20785-04060462

PATIENT
  Age: 76 Year
  Sex: Female
  Weight: 59 kg

DRUGS (11)
  1. THALOMID [Suspect]
     Indication: MULTIPLE MYELOMA
     Dosage: 100 MG, QD, P.O
     Route: 048
     Dates: start: 20040121
  2. VINCRISTINE [Suspect]
     Indication: MULTIPLE MYELOMA
     Dates: start: 20040128
  3. DOXORUBICIN HCL [Suspect]
     Indication: MULTIPLE MYELOMA
     Dates: start: 20040128
  4. DEXAMETHASONE [Suspect]
     Indication: MULTIPLE MYELOMA
     Dosage: 40 MG, QD, P.O
     Route: 048
     Dates: start: 20040128
  5. SYNTHROID [Concomitant]
  6. MVI (MULTIPLE VITAMINS) (TABLETS) [Concomitant]
  7. NEXIUM [Concomitant]
  8. IRON (IRON) [Concomitant]
  9. COLACE (DOCUSATE SODIUM) (CAPSULES) [Concomitant]
  10. SENOKOT (SENNA) (TABLETS) [Concomitant]
  11. COUMADIN [Concomitant]

REACTIONS (2)
  - OEDEMA PERIPHERAL [None]
  - PAIN IN EXTREMITY [None]
